FAERS Safety Report 9298450 (Version 2)
Quarter: 2013Q2

REPORT INFORMATION
  Report Type: Spontaneous
  Country: JP (occurrence: JP)
  Receive Date: 20130520
  Receipt Date: 20130612
  Transmission Date: 20140414
  Serious: Yes (Other)
  Sender: FDA-Public Use
  Company Number: JP-PFIZER INC-2013150803

PATIENT
  Age: 66 Year
  Sex: Female

DRUGS (4)
  1. CISPLATIN [Suspect]
     Indication: GASTRIC CANCER STAGE IV
     Dosage: 60 MG/M2, CYCLIC (DAY 8)
     Route: 042
  2. S-1 [Suspect]
     Indication: GASTRIC CANCER STAGE IV
     Dosage: 100 MG, CYCLIC (DAYS 1 TO 21)
     Route: 048
  3. DEXAMETHASONE [Concomitant]
     Indication: GASTRIC CANCER STAGE IV
     Dosage: 8 MG, CYCLIC (DAY 8)
  4. DEXAMETHASONE [Concomitant]
     Dosage: 5 MG, CYCLIC (DAY 9 + 10)

REACTIONS (2)
  - Aortic thrombosis [Recovered/Resolved]
  - Nausea [Unknown]
